FAERS Safety Report 5341925-2 (Version None)
Quarter: 2007Q2

REPORT INFORMATION
  Report Type: 
  Country: None (occurrence: None)
  Receive Date: 20070601
  Receipt Date: 20070523
  Transmission Date: 20071010
  Serious: Yes (Other)
  Sender: FDA-Public Use
  Company Number: JP-ROCHE-490625

PATIENT
  Age: 28 Year
  Sex: Male
  Weight: 48 kg

DRUGS (3)
  1. TAMIFLU [Suspect]
     Route: 048
     Dates: start: 20070306, end: 20070307
  2. CALONAL [Concomitant]
     Route: 048
     Dates: start: 20070306, end: 20070307
  3. METILON [Concomitant]
     Route: 030
     Dates: start: 20070306, end: 20070306

REACTIONS (1)
  - ABNORMAL BEHAVIOUR [None]
